FAERS Safety Report 17987240 (Version 2)
Quarter: 2020Q3

REPORT INFORMATION
  Report Type: Spontaneous
  Country: FR (occurrence: FR)
  Receive Date: 20200707
  Receipt Date: 20200717
  Transmission Date: 20201103
  Serious: Yes (Life-Threatening, Other)
  Sender: FDA-Public Use
  Company Number: FR-AMGEN-FRASP2020104924

PATIENT

DRUGS (1)
  1. NPLATE [Suspect]
     Active Substance: ROMIPLOSTIM
     Indication: PRODUCT USED FOR UNKNOWN INDICATION
     Dosage: UNK
     Route: 065

REACTIONS (10)
  - Gastrointestinal haemorrhage [Unknown]
  - Haemoperitoneum [Unknown]
  - Systemic lupus erythematosus [Unknown]
  - Antinuclear antibody positive [Unknown]
  - Haemorrhage intracranial [Unknown]
  - Epistaxis [Unknown]
  - Hypogammaglobulinaemia [Unknown]
  - Hypergammaglobulinaemia [Unknown]
  - Lymphoproliferative disorder [Unknown]
  - Autoimmune disorder [Unknown]
